FAERS Safety Report 7366196-7 (Version None)
Quarter: 2011Q1

REPORT INFORMATION
  Report Type: 
  Country: None (occurrence: None)
  Receive Date: 20110322
  Receipt Date: 20110308
  Transmission Date: 20110831
  Serious: Yes (Hospitalization)
  Sender: FDA-Public Use
  Company Number: US-JNJFOC-20090906294

PATIENT
  Sex: Female
  Weight: 68.5 kg

DRUGS (2)
  1. AMPHOTERICIN B [Suspect]
     Indication: HISTOPLASMOSIS
  2. REMICADE [Suspect]
     Indication: INFLAMMATORY BOWEL DISEASE
     Dosage: TOTAL 5 DOSES
     Route: 042
     Dates: start: 20090304, end: 20090804

REACTIONS (2)
  - HISTOPLASMOSIS [None]
  - BLOOD CREATININE INCREASED [None]
